FAERS Safety Report 6247718-6 (Version None)
Quarter: 2009Q2

REPORT INFORMATION
  Report Type: 
  Country: None (occurrence: None)
  Receive Date: 20090626
  Receipt Date: 20090616
  Transmission Date: 20091009
  Serious: Yes (Hospitalization, Other)
  Sender: FDA-Public Use
  Company Number: PHHY2009BE08491

PATIENT
  Sex: Female
  Weight: 64 kg

DRUGS (7)
  1. SANDOSTATIN LAR [Suspect]
     Indication: DIARRHOEA
     Dosage: 20 MG, QMO
     Route: 030
     Dates: start: 20090107, end: 20090204
  2. SANDOSTATIN LAR [Suspect]
     Indication: OVARIAN CANCER
  3. CORTICOSTEROIDS [Concomitant]
  4. CARBOPLATIN [Concomitant]
  5. TAXOL [Concomitant]
     Dosage: UNK
  6. ONDANSETRON [Concomitant]
  7. IMODIUM [Concomitant]

REACTIONS (3)
  - HYPERGLYCAEMIA [None]
  - HYPOCALCAEMIA [None]
  - HYPOMAGNESAEMIA [None]
